FAERS Safety Report 24630525 (Version 3)
Quarter: 2025Q1

REPORT INFORMATION
  Report Type: Spontaneous
  Country: US (occurrence: US)
  Receive Date: 20241118
  Receipt Date: 20250227
  Transmission Date: 20250408
  Serious: No
  Sender: ASCENT PHARMACEUTICALS INC
  Company Number: US-ASCENT-2024ASSPO00045

PATIENT

DRUGS (2)
  1. METHYLPHENIDATE HYDROCHLORIDE [Suspect]
     Active Substance: METHYLPHENIDATE HYDROCHLORIDE
     Indication: Attention deficit hyperactivity disorder
     Route: 065
     Dates: start: 20241004
  2. METHYLPHENIDATE HYDROCHLORIDE [Suspect]
     Active Substance: METHYLPHENIDATE HYDROCHLORIDE
     Indication: Gastrooesophageal reflux disease

REACTIONS (8)
  - Sluggishness [Unknown]
  - Withdrawal syndrome [Recovered/Resolved]
  - Lethargy [Unknown]
  - Illness [Unknown]
  - Therapeutic response decreased [Unknown]
  - Product substitution issue [Unknown]
  - Product formulation issue [Unknown]
  - Wrong technique in product usage process [Unknown]
